FAERS Safety Report 23395175 (Version 2)
Quarter: 2024Q1

REPORT INFORMATION
  Report Type: Spontaneous
  Country: BR (occurrence: BR)
  Receive Date: 20240112
  Receipt Date: 20240125
  Transmission Date: 20240409
  Serious: Yes (Hospitalization, Other)
  Sender: FDA-Public Use
  Company Number: BR-NOVOPROD-1160768

PATIENT
  Age: 18 Year
  Sex: Female

DRUGS (1)
  1. RYBELSUS [Suspect]
     Active Substance: SEMAGLUTIDE
     Indication: Obesity
     Dosage: 3MG

REACTIONS (3)
  - Generalised tonic-clonic seizure [Unknown]
  - Syncope [Unknown]
  - Product use in unapproved indication [Unknown]
